FAERS Safety Report 9460395 (Version 2)
Quarter: 2013Q4

REPORT INFORMATION
  Report Type: Spontaneous
  Country: US (occurrence: US)
  Receive Date: 20130815
  Receipt Date: 20131003
  Transmission Date: 20140711
  Serious: Yes (Hospitalization, Other)
  Sender: FDA-Public Use
  Company Number: US-TEVA-426046USA

PATIENT
  Age: 58 Year
  Sex: Female
  Weight: 74.91 kg

DRUGS (10)
  1. TRAMADOL [Suspect]
     Indication: PAIN
     Dosage: 150 MILLIGRAM DAILY; PRN
     Route: 048
     Dates: end: 201302
  2. COPAXONE [Suspect]
  3. AMPYRA [Suspect]
     Indication: GAIT DISTURBANCE
     Dosage: 20 MILLIGRAM DAILY;
     Route: 048
     Dates: start: 2010, end: 201302
  4. ZOCOR [Concomitant]
  5. LOSARTAN [Concomitant]
     Dates: end: 2013
  6. BACLOFEN [Concomitant]
     Dosage: 30 MILLIGRAM DAILY;
  7. REQUIP [Concomitant]
     Dosage: 200 MILLIGRAM DAILY;
  8. LIPITOR [Concomitant]
  9. ANTIHYPERTENSIVES [Concomitant]
  10. ZANAFLEX [Concomitant]

REACTIONS (9)
  - Convulsion [Recovered/Resolved]
  - Urinary tract infection [Recovered/Resolved]
  - Presyncope [Unknown]
  - Abdominal discomfort [Recovered/Resolved]
  - Arthralgia [Unknown]
  - Myalgia [Unknown]
  - Malaise [Unknown]
  - Memory impairment [Recovered/Resolved]
  - Myopathy [Unknown]
